FAERS Safety Report 18150691 (Version 2)
Quarter: 2020Q3

REPORT INFORMATION
  Report Type: Spontaneous
  Country: AR (occurrence: AR)
  Receive Date: 20200814
  Receipt Date: 20200831
  Transmission Date: 20201103
  Serious: Yes (Other)
  Sender: FDA-Public Use
  Company Number: AR-MYLANLABS-2020M1070829

PATIENT
  Age: 67 Year
  Sex: Female

DRUGS (5)
  1. LAPENAX [Suspect]
     Active Substance: CLOZAPINE
     Dosage: 500 MILLIGRAM, QD
  2. BIPERIDEN [Concomitant]
     Active Substance: BIPERIDEN
     Dosage: 2 MILLIGRAM, QD
  3. LAPENAX [Suspect]
     Active Substance: CLOZAPINE
     Indication: SCHIZOPHRENIA
     Dosage: UNK
     Dates: start: 2010
  4. LAPENAX [Suspect]
     Active Substance: CLOZAPINE
     Dosage: UNK, DOSE DECREASED
     Dates: start: 2019
  5. SODIUM VALPROATE [Concomitant]
     Active Substance: VALPROATE SODIUM
     Dosage: 1500 MILLIGRAM, QD

REACTIONS (4)
  - Sedation complication [Unknown]
  - Leukopenia [Recovered/Resolved]
  - Neutropenia [Recovered/Resolved]
  - Monocyte count increased [Unknown]

NARRATIVE: CASE EVENT DATE: 20200806
